FAERS Safety Report 9820579 (Version 1)
Quarter: 2013Q4

REPORT INFORMATION
  Report Type: Spontaneous
  Country: US (occurrence: None)
  Receive Date: 20131028
  Receipt Date: 20131028
  Transmission Date: 20140711
  Serious: Yes (Other)
  Sender: FDA-Public Use
  Company Number: 2013US001731

PATIENT
  Age: 55 Year
  Sex: Female
  Weight: 92 kg

DRUGS (6)
  1. ICLUSIG [Suspect]
     Indication: CHRONIC MYELOID LEUKAEMIA
     Route: 048
     Dates: start: 20130522
  2. TRIAMTERENE AND HYDROCHLOROTHIAZIDE [Concomitant]
  3. ALLOPURINOL (ALLOPURINOL) [Concomitant]
  4. EXCEDRIN (CAFFEINE, PARACETAMOL) [Concomitant]
  5. IBUPROFEN (IBUPROFEN) [Concomitant]
  6. ARMOUR THYROID (THYROID) [Concomitant]

REACTIONS (13)
  - Flatulence [None]
  - Musculoskeletal stiffness [None]
  - Somnolence [None]
  - Pollakiuria [None]
  - Urine output increased [None]
  - Urine analysis abnormal [None]
  - Arthralgia [None]
  - Pyrexia [None]
  - Abdominal pain [None]
  - Myalgia [None]
  - Constipation [None]
  - Fatigue [None]
  - Headache [None]
